FAERS Safety Report 8698287 (Version 3)
Quarter: 2012Q4

REPORT INFORMATION
  Report Type: 
  Country: JP (occurrence: JP)
  Receive Date: 20120802
  Receipt Date: 20120921
  Transmission Date: 20130627
  Serious: Yes (Death, Hospitalization)
  Sender: FDA-Public Use
  Company Number: JP-SANOFI-AVENTIS-2012SA042784

PATIENT
  Age: 77 Year
  Sex: Male
  Weight: 59.75 kg

DRUGS (9)
  1. PANALDINE [Suspect]
     Indication: ANGINA PECTORIS
     Route: 048
     Dates: start: 20120313, end: 20120604
  2. PLAVIX [Suspect]
     Indication: ANGINA PECTORIS
     Route: 048
     Dates: start: 20120604, end: 20120611
  3. AMIODARONE HYDROCHLORIDE [Suspect]
     Indication: DRUG USE FOR UNKNOWN INDICATION
     Route: 048
     Dates: start: 20120412, end: 20120612
  4. MEROPEN [Suspect]
     Indication: DRUG USE FOR UNKNOWN INDICATION
     Route: 065
     Dates: start: 20120612, end: 20120625
  5. WARFARIN [Concomitant]
     Route: 048
  6. PLETAAL [Concomitant]
     Route: 048
  7. SIGMART [Concomitant]
  8. MEXIRATE [Concomitant]
     Route: 048
  9. PARIET [Concomitant]
     Route: 048

REACTIONS (8)
  - Neutropenia [Fatal]
  - Liver disorder [Recovered/Resolved]
  - Alanine aminotransferase increased [Recovered/Resolved]
  - Aspartate aminotransferase increased [Recovered/Resolved]
  - Blood alkaline phosphatase increased [Recovered/Resolved]
  - Blood lactate dehydrogenase increased [Recovered/Resolved]
  - Gamma-glutamyltransferase increased [Recovered/Resolved]
  - Blood bilirubin increased [Recovered/Resolved]
